FAERS Safety Report 10012875 (Version 1)
Quarter: 2014Q1

REPORT INFORMATION
  Report Type: Report from Study
  Country: GB (occurrence: GB)
  Receive Date: 20140314
  Receipt Date: 20140314
  Transmission Date: 20141002
  Serious: Yes (Other)
  Sender: FDA-Public Use
  Company Number: GB-SA-2014SA032571

PATIENT
  Age: 35 Year
  Sex: Female

DRUGS (1)
  1. OXALIPLATIN [Suspect]
     Indication: COLON CANCER
     Route: 065

REACTIONS (3)
  - Hepatic failure [Unknown]
  - Venoocclusive liver disease [Unknown]
  - Nodular regenerative hyperplasia [Unknown]
